FAERS Safety Report 9701523 (Version 2)
Quarter: 2014Q2

REPORT INFORMATION
  Report Type: Report from Study
  Country: CA (occurrence: CA)
  Receive Date: 20131121
  Receipt Date: 20140625
  Transmission Date: 20141212
  Serious: Yes (Hospitalization)
  Sender: FDA-Public Use
  Company Number: CA-JNJFOC-20131109660

PATIENT
  Age: 74 Year
  Sex: Female
  Weight: 104 kg

DRUGS (2)
  1. REMICADE [Suspect]
     Indication: RHEUMATOID ARTHRITIS
     Dosage: INTERVAL REPORTED AS 8-10 WEEKS
     Route: 042
     Dates: start: 2001
  2. STEROIDS NOS [Suspect]
     Indication: INFECTION
     Route: 065
     Dates: start: 201309

REACTIONS (3)
  - Ulcerative keratitis [Recovered/Resolved]
  - Eye infection [Recovered/Resolved]
  - Vision blurred [Not Recovered/Not Resolved]
